FAERS Safety Report 23675045 (Version 1)
Quarter: 2024Q1

REPORT INFORMATION
  Report Type: Other
  Country: CN (occurrence: None)
  Receive Date: 20240326
  Receipt Date: 20240326
  Transmission Date: 20240410
  Serious: Yes (Other)
  Sender: FDA-Public Use
  Company Number: CN-Nivagen-000102

PATIENT
  Age: 7 Year
  Sex: Male

DRUGS (3)
  1. DECITABINE [Suspect]
     Active Substance: DECITABINE
     Indication: Myelodysplastic syndrome
     Dosage: FIVE-DAY (20 MG/M2 PER DAY)
  2. BUSULFAN [Suspect]
     Active Substance: BUSULFAN
     Indication: Myelodysplastic syndrome
  3. CYCLOPHOSPHAMIDE [Suspect]
     Active Substance: CYCLOPHOSPHAMIDE
     Indication: Myelodysplastic syndrome

REACTIONS (3)
  - Acute myeloid leukaemia [Recovered/Resolved]
  - Myelodysplastic syndrome [Recovered/Resolved]
  - Disease recurrence [Recovered/Resolved]
